FAERS Safety Report 12128222 (Version 1)
Quarter: 2016Q1

REPORT INFORMATION
  Report Type: Report from Study
  Country: AU (occurrence: AU)
  Receive Date: 20160229
  Receipt Date: 20160229
  Transmission Date: 20160526
  Serious: Yes (Hospitalization)
  Sender: FDA-Public Use
  Company Number: AU-REGENERON PHARMACEUTICALS, INC.-2015-11604

PATIENT

DRUGS (18)
  1. BLINDED LASER [Suspect]
     Active Substance: DEVICE
  2. PLACEBO [Suspect]
     Active Substance: UNSPECIFIED INGREDIENT
  3. NEXIUM [Concomitant]
     Active Substance: ESOMEPRAZOLE MAGNESIUM
     Indication: GASTRIC ULCER
     Dosage: 40 MG, UNK
     Route: 048
     Dates: start: 2012
  4. TRAMADOL. [Concomitant]
     Active Substance: TRAMADOL
     Indication: BACK PAIN
     Dosage: 200 MG, UNK
     Route: 048
     Dates: start: 2000
  5. ENDEP [Concomitant]
     Active Substance: AMITRIPTYLINE HYDROCHLORIDE
     Indication: SLEEP APNOEA SYNDROME
     Dosage: 25 MG, UNK
     Route: 048
     Dates: start: 2005
  6. VAGIFEM [Concomitant]
     Active Substance: ESTRADIOL
     Indication: ATROPHIC VULVOVAGINITIS
     Dosage: 25 ?G, UNK
     Route: 061
     Dates: start: 2007
  7. MYDRIACYL [Concomitant]
     Active Substance: TROPICAMIDE
     Indication: DIAGNOSTIC PROCEDURE
     Dosage: 1 GTT, UNK
     Route: 061
     Dates: start: 20150326
  8. CARVEDILOL. [Concomitant]
     Active Substance: CARVEDILOL
     Indication: HYPERTENSION
     Dosage: 6.25 MG, UNK
     Route: 048
     Dates: start: 2007, end: 20150421
  9. FLUORESCEIN [Concomitant]
     Active Substance: FLUORESCEIN
     Indication: DIAGNOSTIC PROCEDURE
     Dosage: 50 ML, UNK
     Route: 042
     Dates: start: 20150326
  10. METAMUCIL [Concomitant]
     Active Substance: PLANTAGO SEED
     Indication: CONSTIPATION
     Dosage: 3.4G PER 7G
     Route: 048
     Dates: start: 2005
  11. PANADOL [Concomitant]
     Active Substance: ACETAMINOPHEN
     Indication: PAIN
     Dosage: 665 MG, UNK
     Route: 048
     Dates: start: 2008
  12. INDOCYANINE GREEN. [Concomitant]
     Active Substance: INDOCYANINE GREEN
     Indication: DIAGNOSTIC PROCEDURE
     Dosage: 25 MG / 5 ML
     Route: 042
     Dates: start: 20150326
  13. BENOXINATE HYDROCHLORIDE [Concomitant]
     Active Substance: BENOXINATE HYDROCHLORIDE
     Indication: DIAGNOSTIC PROCEDURE
     Dosage: 0.4 %, UNK
     Route: 061
     Dates: start: 20150326
  14. EYLEA [Suspect]
     Active Substance: AFLIBERCEPT
     Indication: POLYPOIDAL CHOROIDAL VASCULOPATHY
     Dosage: 0.5 ML MILLILITRE(S), QD
     Dates: start: 20150326, end: 20150326
  15. VISUDYNE [Suspect]
     Active Substance: VERTEPORFIN
     Indication: POLYPOIDAL CHOROIDAL VASCULOPATHY
     Dosage: UNK
  16. CLOPIDOGREL [Concomitant]
     Active Substance: CLOPIDOGREL BISULFATE
     Indication: THROMBOSIS PROPHYLAXIS
     Dosage: 75 MG, UNK
     Route: 048
     Dates: start: 2007, end: 20150421
  17. METAMUCIL [Concomitant]
     Active Substance: PLANTAGO SEED
     Indication: CONSTIPATION
     Dosage: 3.4G PER 7G
     Route: 048
     Dates: start: 2005
  18. NEXIUM [Concomitant]
     Active Substance: ESOMEPRAZOLE MAGNESIUM
     Indication: GASTRIC ULCER
     Dosage: 40 MG, UNK
     Route: 048
     Dates: start: 2012

REACTIONS (1)
  - Vaginal operation [Recovered/Resolved]

NARRATIVE: CASE EVENT DATE: 20150609
